FAERS Safety Report 24442832 (Version 2)
Quarter: 2024Q4

REPORT INFORMATION
  Report Type: Spontaneous
  Country: US (occurrence: US)
  Receive Date: 20241016
  Receipt Date: 20241020
  Transmission Date: 20250114
  Serious: Yes (Death, Life-Threatening, Hospitalization, Other)
  Sender: AUROBINDO
  Company Number: US-MLMSERVICE-20241001-PI208617-00270-4

PATIENT
  Age: 63 Year
  Sex: Male

DRUGS (8)
  1. METHYLPREDNISOLONE [Suspect]
     Active Substance: METHYLPREDNISOLONE
     Indication: Graft versus host disease
     Dosage: 1 GRAM, ONCE A DAY (ONCE A DAY)
     Route: 042
  2. ERTAPENEM [Suspect]
     Active Substance: ERTAPENEM
     Indication: Escherichia infection
     Dosage: 1 GRAM, ONCE A DAY
     Route: 042
  3. PREDNISONE [Suspect]
     Active Substance: PREDNISONE
     Indication: Graft versus host disease
     Dosage: 10 MILLIGRAM, ONCE A DAY
     Route: 065
  4. PREDNISONE [Suspect]
     Active Substance: PREDNISONE
     Dosage: 20 MILLIGRAM, ONCE A DAY
     Route: 048
  5. MYCOPHENOLIC ACID [Suspect]
     Active Substance: MYCOPHENOLIC ACID
     Indication: Immunosuppressant drug therapy
     Dosage: UNK
     Route: 065
  6. CYCLOSPORINE [Suspect]
     Active Substance: CYCLOSPORINE
     Indication: Graft versus host disease
     Dosage: 150 MILLIGRAM, TWO TIMES A DAY
     Route: 048
  7. TACROLIMUS [Suspect]
     Active Substance: TACROLIMUS
     Indication: Graft versus host disease
     Dosage: 3 MILLIGRAM, TWO TIMES A DAY (TWICE DAILY)
     Route: 065
  8. TACROLIMUS [Suspect]
     Active Substance: TACROLIMUS
     Indication: Immunosuppressant drug therapy
     Dosage: 1.5 MILLIGRAM (DECREASED TO 1.5 MG TWICE DAILY)
     Route: 065

REACTIONS (5)
  - Escherichia infection [Fatal]
  - Malacoplakia [Fatal]
  - Leukopenia [Unknown]
  - Cytomegalovirus viraemia [Unknown]
  - Drug ineffective [Unknown]
